FAERS Safety Report 8591207-0 (Version None)
Quarter: 2012Q3

REPORT INFORMATION
  Report Type: 
  Country: None (occurrence: None)
  Receive Date: 20120813
  Receipt Date: 20120806
  Transmission Date: 20120928
  Serious: Yes (Other)
  Sender: FDA-Public Use
  Company Number: JP-GILEAD-2012-0059640

PATIENT
  Age: 41 Year
  Sex: Female

DRUGS (3)
  1. HEPSERA [Suspect]
     Indication: HEPATITIS B
     Dosage: 10MG PER DAY
     Route: 048
     Dates: start: 20080110
  2. LAMIVUDINE [Concomitant]
     Indication: HEPATITIS B
     Route: 048
  3. BARACLUDE [Concomitant]
     Indication: HEPATITIS B
     Route: 048
     Dates: start: 20110711

REACTIONS (1)
  - RENAL TUBULAR ACIDOSIS [None]
